FAERS Safety Report 19246704 (Version 2)
Quarter: 2021Q2

REPORT INFORMATION
  Report Type: Report from Study
  Country: US (occurrence: US)
  Receive Date: 20210512
  Receipt Date: 20210518
  Transmission Date: 20210717
  Serious: No
  Sender: FDA-Public Use
  Company Number: US-AGIOS-2105US02722

PATIENT

DRUGS (30)
  1. BIOCELL [Concomitant]
  2. UBIQUINOL CO Q10 [Concomitant]
     Active Substance: UBIQUINOL
  3. DULCOLAX (BISACODYL) [Concomitant]
     Active Substance: BISACODYL
  4. FOLIC ACID. [Concomitant]
     Active Substance: FOLIC ACID
  5. METHYL FOLATE [Concomitant]
     Active Substance: LEVOMEFOLATE CALCIUM
  6. CANDIDA SUPPORT [Concomitant]
  7. IVERMECTIN. [Concomitant]
     Active Substance: IVERMECTIN
  8. LYSINE [Concomitant]
     Active Substance: LYSINE
  9. CHARCOAL [Concomitant]
     Active Substance: ACTIVATED CHARCOAL
  10. MINERALS [Concomitant]
     Active Substance: MINERALS
  11. MAGNESIUM [Concomitant]
     Active Substance: MAGNESIUM
  12. PROBIOTICS NOS [Concomitant]
     Active Substance: PROBIOTICS NOS
  13. VITAMIN C [Concomitant]
     Active Substance: ASCORBIC ACID
  14. CYMBALTA [Concomitant]
     Active Substance: DULOXETINE HYDROCHLORIDE
  15. ONDANSETRON [Concomitant]
     Active Substance: ONDANSETRON
  16. TURMERIC                           /01079602/ [Concomitant]
     Active Substance: HERBALS\TURMERIC
  17. NEUPOGEN [Concomitant]
     Active Substance: FILGRASTIM
     Dosage: UNK
  18. DHEA [Concomitant]
     Active Substance: PRASTERONE
     Dosage: 100 MILLIGRAM
  19. SAME                               /00882301/ [Concomitant]
  20. CANNABIDIOL [Concomitant]
     Active Substance: CANNABIDIOL
  21. TIBSOVO [Suspect]
     Active Substance: IVOSIDENIB
     Indication: MYELODYSPLASTIC SYNDROME
     Dosage: 250 MILLIGRAM, 2 TABLETS (500 MG), QD
     Route: 048
  22. VITAMIN K2 + D3 [Concomitant]
  23. FISH OIL [Concomitant]
     Active Substance: FISH OIL
  24. VITAMIN B12 [Concomitant]
     Active Substance: CYANOCOBALAMIN
  25. B50 COMPLEX [Concomitant]
  26. MELATONIN [Concomitant]
     Active Substance: MELATONIN
  27. LECITHIN [Concomitant]
     Active Substance: LECITHIN
  28. FLORADIX [Concomitant]
     Active Substance: IRON
  29. CYTOMEL [Concomitant]
     Active Substance: LIOTHYRONINE SODIUM
     Dosage: 5 MICROGRAM
  30. BIOPLASMA FDP [Concomitant]

REACTIONS (5)
  - Confusional state [Unknown]
  - Sleep disorder [Unknown]
  - Heart rate increased [Unknown]
  - Off label use [Unknown]
  - Blood glucose decreased [Unknown]
